FAERS Safety Report 4318221-5 (Version None)
Quarter: 2004Q1

REPORT INFORMATION
  Report Type: 
  Country: None (occurrence: None)
  Receive Date: 20040315
  Receipt Date: 20040228
  Transmission Date: 20041129
  Serious: Yes (Death, Life-Threatening, Hospitalization)
  Sender: FDA-Public Use
  Company Number: WAES 97101426

PATIENT
  Age: 8 Day
  Sex: Female

DRUGS (3)
  1. INDOCIN I.V. [Suspect]
     Indication: PATENT DUCTUS ARTERIOSUS
     Route: 042
     Dates: start: 19970123, end: 19970123
  2. INDOCIN I.V. [Suspect]
     Indication: PATENT DUCTUS ARTERIOSUS
     Route: 042
     Dates: start: 19970124, end: 19970124
  3. DOPAMINE HCL [Concomitant]

REACTIONS (4)
  - ENTERITIS NECROTICANS [None]
  - GASTROINTESTINAL PERFORATION [None]
  - NEONATAL DISORDER [None]
  - SEPSIS [None]
